FAERS Safety Report 9352143 (Version 1)
Quarter: 2013Q2

REPORT INFORMATION
  Report Type: Spontaneous
  Country: US (occurrence: US)
  Receive Date: 20130617
  Receipt Date: 20130617
  Transmission Date: 20140414
  Serious: No
  Sender: FDA-Public Use
  Company Number: US-BIOGENIDEC-2013BI051270

PATIENT
  Sex: Female

DRUGS (2)
  1. AVONEX [Suspect]
     Indication: MULTIPLE SCLEROSIS
     Route: 030
     Dates: start: 20030104
  2. AVONEX [Suspect]
     Indication: MULTIPLE SCLEROSIS
     Route: 030

REACTIONS (7)
  - Ankle fracture [Recovered/Resolved]
  - Rotator cuff syndrome [Recovered/Resolved]
  - Adverse event [Recovered/Resolved]
  - Fall [Recovered/Resolved with Sequelae]
  - Stress [Unknown]
  - Gait disturbance [Unknown]
  - Anxiety [Unknown]
